FAERS Safety Report 5730607-0 (Version None)
Quarter: 2008Q2

REPORT INFORMATION
  Report Type: 
  Country: None (occurrence: None)
  Receive Date: 20080507
  Receipt Date: 20080429
  Transmission Date: 20081010
  Serious: Yes (Life-Threatening, Hospitalization)
  Sender: FDA-Public Use
  Company Number: B0519004A

PATIENT
  Age: 93 Year
  Sex: Female

DRUGS (6)
  1. ARIXTRA [Suspect]
     Indication: DEEP VEIN THROMBOSIS
     Route: 058
     Dates: start: 20080119
  2. AUGMENTIN '125' [Concomitant]
     Route: 048
     Dates: start: 20080119
  3. ATHYMIL [Concomitant]
     Indication: MAJOR DEPRESSION
     Route: 048
     Dates: end: 20080130
  4. LASILIX [Concomitant]
     Indication: DIURETIC THERAPY
     Route: 065
  5. ZOLOFT [Concomitant]
     Indication: MAJOR DEPRESSION
     Route: 048
  6. SOTALOL HCL [Concomitant]
     Indication: DRUG USE FOR UNKNOWN INDICATION
     Route: 048

REACTIONS (3)
  - ANAEMIA [None]
  - DYSPNOEA [None]
  - HAEMATOMA [None]
